FAERS Safety Report 16846122 (Version 1)
Quarter: 2019Q3

REPORT INFORMATION
  Report Type: Spontaneous
  Country: DE (occurrence: DE)
  Receive Date: 20190924
  Receipt Date: 20190924
  Transmission Date: 20191005
  Serious: Yes (Other)
  Sender: FDA-Public Use
  Company Number: DE-ALEXION-A201912216

PATIENT
  Age: 42 Year
  Sex: Male

DRUGS (1)
  1. SOLIRIS [Suspect]
     Active Substance: ECULIZUMAB
     Indication: PAROXYSMAL NOCTURNAL HAEMOGLOBINURIA
     Route: 065

REACTIONS (9)
  - Blood lactate dehydrogenase increased [Unknown]
  - Mean cell haemoglobin concentration decreased [Unknown]
  - Haptoglobin decreased [Unknown]
  - Mean cell haemoglobin increased [Unknown]
  - Haemolysis [Unknown]
  - Serum ferritin increased [Unknown]
  - Haemoglobin decreased [Unknown]
  - Haematocrit decreased [Unknown]
  - Mean cell volume increased [Unknown]

NARRATIVE: CASE EVENT DATE: 20190205
